FAERS Safety Report 7805098-6 (Version None)
Quarter: 2011Q4

REPORT INFORMATION
  Report Type: 
  Country: None (occurrence: None)
  Receive Date: 20111010
  Receipt Date: 20111005
  Transmission Date: 20120403
  Serious: Yes (Hospitalization, Other)
  Sender: FDA-Public Use
  Company Number: FR-B.I. PHARMACEUTICALS,INC./RIDGEFIELD-2011-FF-00893FF

PATIENT
  Sex: Female
  Weight: 62 kg

DRUGS (1)
  1. PRADAXA [Suspect]
     Indication: KNEE ARTHROPLASTY
     Route: 048

REACTIONS (1)
  - CHOLECYSTITIS [None]
